FAERS Safety Report 12522101 (Version 2)
Quarter: 2016Q3

REPORT INFORMATION
  Report Type: Spontaneous
  Country: JP (occurrence: JP)
  Receive Date: 20160701
  Receipt Date: 20160728
  Transmission Date: 20161109
  Serious: No
  Sender: FDA-Public Use
  Company Number: JP-GLAXOSMITHKLINE-JP2016JPN092121

PATIENT
  Age: 18 Year
  Sex: Female

DRUGS (4)
  1. DUAC GEL [Suspect]
     Active Substance: BENZOYL PEROXIDE\CLINDAMYCIN PHOSPHATE
     Indication: ACNE
     Dosage: UNK, QD
     Route: 050
     Dates: start: 20160324, end: 20160407
  2. VIBRAMYCIN [Concomitant]
     Active Substance: DOXYCYCLINE
     Indication: ACNE
     Dosage: 50 MG, BID
     Dates: start: 20160323, end: 20160412
  3. DIFFERIN [Suspect]
     Active Substance: ADAPALENE
     Indication: ACNE
     Dosage: UNK UNK, QD
     Route: 050
     Dates: start: 20160324
  4. DIFFERIN [Suspect]
     Active Substance: ADAPALENE
     Dosage: UNK, QD
     Route: 050

REACTIONS (5)
  - Dermatitis contact [Recovered/Resolved]
  - Rash maculo-papular [Recovered/Resolved]
  - Erythema [Recovered/Resolved]
  - Application site swelling [Recovered/Resolved]
  - Application site pruritus [Recovered/Resolved]

NARRATIVE: CASE EVENT DATE: 20160407
